FAERS Safety Report 5285688-8 (Version None)
Quarter: 2007Q1

REPORT INFORMATION
  Report Type: 
  Country: None (occurrence: None)
  Receive Date: 20070126
  Receipt Date: 20060614
  Transmission Date: 20070707
  Serious: No
  Sender: FDA-Public Use
  Company Number: 2006CT001168

PATIENT
  Age: 42 Year
  Sex: Male
  Weight: 70 kg

DRUGS (8)
  1. VENTAVIS [Suspect]
     Indication: PULMONARY HYPERTENSION
     Dosage: 2.5 UG;4XD;INH
     Route: 055
     Dates: start: 20060602, end: 20060614
  2. ACTIGALL [Concomitant]
  3. ALDACTONE [Concomitant]
  4. FERROUS SULFATE [Concomitant]
  5. LASIX [Concomitant]
  6. NADOLOL [Concomitant]
  7. PRILOSEC [Concomitant]
  8. TYLENOL [Concomitant]

REACTIONS (1)
  - FATIGUE [None]
